FAERS Safety Report 24580820 (Version 1)
Quarter: 2024Q4

REPORT INFORMATION
  Report Type: Spontaneous
  Country: US (occurrence: US)
  Receive Date: 20241105
  Receipt Date: 20241105
  Transmission Date: 20250115
  Serious: Yes (Hospitalization)
  Sender: DR REDDYS
  Company Number: US-drreddys-SPO/USA/23/0179957

PATIENT
  Age: 68 Year
  Sex: Female

DRUGS (2)
  1. CLOZAPINE [Suspect]
     Active Substance: CLOZAPINE
     Indication: Product used for unknown indication
  2. CLOZAPINE [Suspect]
     Active Substance: CLOZAPINE

REACTIONS (2)
  - Hospitalisation [Unknown]
  - Monocyte count increased [Unknown]

NARRATIVE: CASE EVENT DATE: 20230927
